FAERS Safety Report 20902983 (Version 2)
Quarter: 2023Q1

REPORT INFORMATION
  Report Type: Spontaneous
  Country: CN (occurrence: CN)
  Receive Date: 20220601
  Receipt Date: 20230330
  Transmission Date: 20230418
  Serious: Yes (Hospitalization, Other)
  Sender: FDA-Public Use
  Company Number: CN-PFIZER INC-202200772609

PATIENT
  Age: 34 Year
  Sex: Male
  Weight: 40 kg

DRUGS (1)
  1. VFEND [Suspect]
     Active Substance: VORICONAZOLE
     Indication: Therapeutic procedure
     Dosage: 200 MG, 2X/DAY
     Route: 041
     Dates: start: 20220412, end: 20220414

REACTIONS (3)
  - Hallucination [Recovering/Resolving]
  - Hallucination, auditory [Recovering/Resolving]
  - Halo vision [Recovering/Resolving]

NARRATIVE: CASE EVENT DATE: 20220413
